FAERS Safety Report 5542415-4 (Version None)
Quarter: 2007Q4

REPORT INFORMATION
  Report Type: 
  Country: None (occurrence: None)
  Receive Date: 20071123
  Receipt Date: 20070918
  Transmission Date: 20080405
  Serious: Yes (Hospitalization)
  Sender: FDA-Public Use
  Company Number: US-JNJFOC-20070904261

PATIENT
  Age: 38 Year
  Sex: Male

DRUGS (7)
  1. LEVAQUIN [Suspect]
     Indication: ANTIBIOTIC PROPHYLAXIS
     Dates: start: 20070524
  2. RITUXIMAB (RITUXIMAB) UNSPECIFIED [Concomitant]
  3. CYCLOPHOSPHAMIDE (CYCLOPHOSPHAMIDE) UNSPECIFIED [Concomitant]
  4. DOXORUBICIN HYDROCHLORIDE (DOXORUBICIN HYDROCHLORIDE) UNSPECIFIED [Concomitant]
  5. PREDNISONE (PREDNISONE) UNSPECIFIED [Concomitant]
  6. COMPAZINE (PROCHLORPERAZINE EDISYLATE) UNSPECIFIED [Concomitant]
  7. VINCRISTINE (VINCRISTINE) UNSPECIFIED [Concomitant]

REACTIONS (1)
  - HYPERSENSITIVITY [None]
